FAERS Safety Report 4590879-5 (Version None)
Quarter: 2005Q1

REPORT INFORMATION
  Report Type: 
  Country: None (occurrence: None)
  Receive Date: 20050225
  Receipt Date: 20040611
  Transmission Date: 20050727
  Serious: No
  Sender: FDA-Public Use
  Company Number: US-GLAXOSMITHKLINE-A0514338A

PATIENT
  Age: 39 Year
  Sex: Male
  Weight: 52.7 kg

DRUGS (4)
  1. ZIAGEN [Suspect]
     Indication: HIV INFECTION
     Dosage: 300MG TWICE PER DAY
     Route: 048
     Dates: start: 20040518, end: 20040528
  2. EPIVIR [Concomitant]
     Indication: HIV INFECTION
     Route: 048
  3. VIDEX [Concomitant]
  4. KALETRA [Concomitant]

REACTIONS (7)
  - CONFUSIONAL STATE [None]
  - DYSARTHRIA [None]
  - HYPERSENSITIVITY [None]
  - MENTAL STATUS CHANGES [None]
  - PRURITUS [None]
  - RASH [None]
  - URTICARIA [None]
